FAERS Safety Report 16480600 (Version 3)
Quarter: 2020Q1

REPORT INFORMATION
  Report Type: Report from Study
  Country: US (occurrence: US)
  Receive Date: 20190626
  Receipt Date: 20200221
  Transmission Date: 20200409
  Serious: Yes (Other)
  Sender: FDA-Public Use
  Company Number: PHEH2019US026710

PATIENT
  Sex: Female

DRUGS (1)
  1. GILENYA [Suspect]
     Active Substance: FINGOLIMOD HYDROCHLORIDE
     Indication: PRODUCT USED FOR UNKNOWN INDICATION
     Dosage: UNK
     Route: 065

REACTIONS (6)
  - Hemiplegia [Unknown]
  - Headache [Unknown]
  - Insomnia [Unknown]
  - Psoriasis [Unknown]
  - Multiple sclerosis [Unknown]
  - Hypersensitivity [Unknown]
